FAERS Safety Report 5076984-8 (Version None)
Quarter: 2006Q3

REPORT INFORMATION
  Report Type: 
  Country: None (occurrence: None)
  Receive Date: 20060810
  Receipt Date: 20060727
  Transmission Date: 20061208
  Serious: Yes (Other)
  Sender: FDA-Public Use
  Company Number: DE-GLAXOSMITHKLINE-D0050450A

PATIENT
  Age: 80 Year
  Sex: Female
  Weight: 72 kg

DRUGS (5)
  1. ARIXTRA [Suspect]
     Dosage: 7.5MG PER DAY
     Route: 058
     Dates: start: 20060125, end: 20060221
  2. LANTUS [Concomitant]
     Route: 058
  3. FUROSEMIDE [Concomitant]
     Dosage: 40MG UNKNOWN
     Route: 048
  4. ALLOPURINOL [Concomitant]
     Dosage: 300MG UNKNOWN
     Route: 048
  5. ENAHEXAL [Concomitant]
     Dosage: 20MG UNKNOWN
     Route: 048

REACTIONS (2)
  - ECCHYMOSIS [None]
  - SKIN NECROSIS [None]
